FAERS Safety Report 4474280-0 (Version None)
Quarter: 2004Q4

REPORT INFORMATION
  Report Type: 
  Country: None (occurrence: None)
  Receive Date: 20041014
  Receipt Date: 20040817
  Transmission Date: 20050328
  Serious: Yes (Hospitalization, Disabling)
  Sender: FDA-Public Use
  Company Number: US-ROCHE-377960

PATIENT
  Age: 87 Week
  Sex: Female
  Weight: 10 kg

DRUGS (1)
  1. ROCEPHIN [Suspect]
     Indication: PNEUMONIA
     Route: 042
     Dates: start: 20040813, end: 20040814

REACTIONS (3)
  - COMPARTMENT SYNDROME [None]
  - EXTRAVASATION [None]
  - SKIN DESQUAMATION [None]
